FAERS Safety Report 21597152 (Version 2)
Quarter: 2023Q2

REPORT INFORMATION
  Report Type: Spontaneous
  Country: CA (occurrence: CA)
  Receive Date: 20221115
  Receipt Date: 20230407
  Transmission Date: 20230722
  Serious: Yes (Other)
  Sender: FDA-Public Use
  Company Number: CA-SAMSUNG BIOEPIS-SB-2022-28360

PATIENT
  Age: 31 Year
  Sex: Male

DRUGS (2)
  1. ADALIMUMAB [Suspect]
     Active Substance: ADALIMUMAB
     Indication: Crohn^s disease
     Dosage: SOLUTION SUBCUTANEOUS;
     Route: 058
  2. ADALIMUMAB [Suspect]
     Active Substance: ADALIMUMAB
     Route: 058

REACTIONS (6)
  - Abdominal pain [Not Recovered/Not Resolved]
  - Pain [Not Recovered/Not Resolved]
  - Psoriasis [Not Recovered/Not Resolved]
  - Psoriatic arthropathy [Not Recovered/Not Resolved]
  - Stress [Not Recovered/Not Resolved]
  - Drug ineffective [Not Recovered/Not Resolved]
